FAERS Safety Report 25220612 (Version 2)
Quarter: 2025Q3

REPORT INFORMATION
  Report Type: Report from Study
  Country: JP (occurrence: JP)
  Receive Date: 20250421
  Receipt Date: 20250829
  Transmission Date: 20251021
  Serious: Yes (Other)
  Sender: PFIZER
  Company Number: JP-PFIZER INC-PV202500043965

PATIENT
  Age: 83 Year
  Sex: Female
  Weight: 35.4 kg

DRUGS (5)
  1. ELRANATAMAB [Suspect]
     Active Substance: ELRANATAMAB
     Indication: Plasma cell myeloma refractory
     Dates: start: 20250114, end: 20250114
  2. ELRANATAMAB [Suspect]
     Active Substance: ELRANATAMAB
     Dates: start: 20250117, end: 20250117
  3. ELRANATAMAB [Suspect]
     Active Substance: ELRANATAMAB
     Dates: start: 20250328, end: 20250328
  4. ELRANATAMAB [Suspect]
     Active Substance: ELRANATAMAB
     Dates: start: 20250331, end: 20250331
  5. ELRANATAMAB [Suspect]
     Active Substance: ELRANATAMAB
     Dates: start: 20250407

REACTIONS (1)
  - Bronchopulmonary aspergillosis [Recovering/Resolving]

NARRATIVE: CASE EVENT DATE: 20250120
